FAERS Safety Report 24613751 (Version 1)
Quarter: 2024Q4

REPORT INFORMATION
  Report Type: Spontaneous
  Country: IT (occurrence: IT)
  Receive Date: 20241113
  Receipt Date: 20241113
  Transmission Date: 20250114
  Serious: Yes (Other)
  Sender: PFIZER
  Company Number: IT-Accord-453677

PATIENT
  Age: 64 Year
  Sex: Female

DRUGS (2)
  1. AZITHROMYCIN [Suspect]
     Active Substance: AZITHROMYCIN
     Indication: Bronchiectasis
     Dosage: UNK
  2. AZITHROMYCIN [Suspect]
     Active Substance: AZITHROMYCIN
     Indication: Antibiotic therapy

REACTIONS (9)
  - Near death experience [Recovered/Resolved]
  - Atrial fibrillation [Recovered/Resolved]
  - Hypertension [Recovered/Resolved]
  - Tachyarrhythmia [Recovered/Resolved]
  - Palpitations [Recovered/Resolved]
  - Tachypnoea [Recovered/Resolved]
  - Electrocardiogram QT prolonged [Unknown]
  - Extrasystoles [Recovered/Resolved]
  - Supraventricular extrasystoles [Unknown]
